FAERS Safety Report 6988233-1 (Version None)
Quarter: 2010Q3

REPORT INFORMATION
  Report Type: 
  Country: None (occurrence: None)
  Receive Date: 20100916
  Receipt Date: 20100908
  Transmission Date: 20110219
  Serious: Yes (Other)
  Sender: FDA-Public Use
  Company Number: BR-ROCHE-726801

PATIENT
  Sex: Male
  Weight: 62 kg

DRUGS (5)
  1. ROACUTAN [Suspect]
     Indication: ACNE
     Route: 065
     Dates: start: 20050101, end: 20050101
  2. ROACUTAN [Suspect]
     Route: 065
     Dates: start: 20050101
  3. ROACUTAN [Suspect]
     Route: 065
  4. ROACUTAN [Suspect]
     Route: 065
     Dates: end: 20080101
  5. ROACUTAN [Suspect]
     Route: 065
     Dates: start: 20100801

REACTIONS (2)
  - ACNE [None]
  - WEIGHT INCREASED [None]
